FAERS Safety Report 7654543-8 (Version None)
Quarter: 2011Q3

REPORT INFORMATION
  Report Type: 
  Country: None (occurrence: None)
  Receive Date: 20110803
  Receipt Date: 20110729
  Transmission Date: 20111222
  Serious: Yes (Hospitalization)
  Sender: FDA-Public Use
  Company Number: CH-MERCK-1107USA04012

PATIENT
  Age: 78 Year
  Sex: Female

DRUGS (3)
  1. FOSAMAX [Suspect]
     Indication: OSTEOPOROSIS
     Route: 048
     Dates: start: 20000101, end: 20070601
  2. IBANDRONATE SODIUM [Suspect]
     Indication: OSTEOPOROSIS
     Route: 042
     Dates: start: 20070601, end: 20100401
  3. CALCIMAGON [Concomitant]
     Indication: OSTEOPOROSIS
     Route: 065
     Dates: start: 20000101

REACTIONS (3)
  - GASTROINTESTINAL DISORDER [None]
  - OSTEONECROSIS OF JAW [None]
  - DRUG INEFFECTIVE [None]
